FAERS Safety Report 9699281 (Version 2)
Quarter: 2013Q4

REPORT INFORMATION
  Report Type: Spontaneous
  Country: US (occurrence: US)
  Receive Date: 20131120
  Receipt Date: 20131120
  Transmission Date: 20140711
  Serious: Yes (Disabling)
  Sender: FDA-Public Use
  Company Number: US-GILEAD-2008-0015350

PATIENT
  Age: 53 Year
  Sex: Female

DRUGS (11)
  1. LETAIRIS [Suspect]
     Indication: PULMONARY ARTERIAL HYPERTENSION
     Route: 048
     Dates: start: 20070802, end: 20071127
  2. LASIX [Concomitant]
     Dosage: UD
     Route: 048
  3. LISINOPRIL [Concomitant]
     Dosage: UD
     Route: 048
  4. TOPROL XL [Concomitant]
     Dosage: UD
     Route: 048
  5. DIGITEK [Concomitant]
     Dosage: UD
     Route: 048
  6. SYNTHROID [Concomitant]
     Dosage: UD
     Route: 048
  7. N-ACETYL-L-CYSTEINE [Concomitant]
     Dosage: UD
     Route: 048
  8. NOVOLOG [Concomitant]
     Dosage: UD
     Route: 048
  9. HUMULIN N [Concomitant]
     Dosage: UD
     Route: 048
  10. PREDNISONE [Concomitant]
     Indication: CONNECTIVE TISSUE DISORDER
     Dosage: UD
     Route: 048
  11. OXYGEN [Concomitant]

REACTIONS (1)
  - Dyspnoea [Recovered/Resolved]
